FAERS Safety Report 9019692 (Version 1)
Quarter: 2013Q1

REPORT INFORMATION
  Report Type: Spontaneous
  Country: US (occurrence: US)
  Receive Date: 20130118
  Receipt Date: 20130118
  Transmission Date: 20140127
  Serious: No
  Sender: FDA-Public Use
  Company Number: US-PFIZER INC-2013020014

PATIENT
  Age: 60 Year
  Sex: Female
  Weight: 83.9 kg

DRUGS (5)
  1. CENTRUM [Suspect]
     Indication: VITAMIN SUPPLEMENTATION
     Dosage: UNK, ONCE A DAY
     Route: 048
     Dates: start: 1995, end: 2012
  2. ADVIL [Suspect]
     Indication: HEADACHE
     Dosage: UNK, ONCE A DAY
     Route: 048
     Dates: start: 1995
  3. HYDROXYZINE [Concomitant]
     Dosage: UNK
  4. ALLEGRA [Concomitant]
     Dosage: UNK
  5. PRILOSEC [Concomitant]
     Indication: GASTROOESOPHAGEAL REFLUX DISEASE
     Dosage: UNK

REACTIONS (2)
  - Urticaria [Not Recovered/Not Resolved]
  - Pruritus [Not Recovered/Not Resolved]
